FAERS Safety Report 9729941 (Version 1)
Quarter: 2013Q4

REPORT INFORMATION
  Report Type: Spontaneous
  Country: CN (occurrence: None)
  Receive Date: 20131203
  Receipt Date: 20131203
  Transmission Date: 20140711
  Serious: Yes (Life-Threatening)
  Sender: FDA-Public Use
  Company Number: 2013P1021345

PATIENT
  Age: 29 Year
  Sex: Female

DRUGS (2)
  1. HEPARIN [Suspect]
     Dosage: ; IV
     Route: 042
  2. WARFARIN [Suspect]
     Dates: start: 2010

REACTIONS (6)
  - Abdominal pain upper [None]
  - Blood pressure decreased [None]
  - Splenic rupture [None]
  - Peritoneal haemorrhage [None]
  - Haemoglobin decreased [None]
  - Exposure during pregnancy [None]
